FAERS Safety Report 21627325 (Version 3)
Quarter: 2022Q4

REPORT INFORMATION
  Report Type: Report from Study
  Country: US (occurrence: US)
  Receive Date: 20221122
  Receipt Date: 20221221
  Transmission Date: 20230112
  Serious: Yes (Hospitalization)
  Sender: FDA-Public Use
  Company Number: US-ABBVIE-4206804

PATIENT
  Age: 2 Year
  Sex: Female

DRUGS (2)
  1. VENCLEXTA [Suspect]
     Active Substance: VENETOCLAX
     Indication: Acute megakaryocytic leukaemia
     Dosage: 50 MILLIGRAM
     Route: 048
     Dates: start: 202211
  2. VANCOMYCIN [Suspect]
     Active Substance: VANCOMYCIN
     Indication: Product used for unknown indication
     Route: 065

REACTIONS (5)
  - Infection [Unknown]
  - Drug hypersensitivity [Unknown]
  - Erythema [Unknown]
  - Off label use [Unknown]
  - Localised infection [Unknown]

NARRATIVE: CASE EVENT DATE: 20221210
